FAERS Safety Report 4435359-2 (Version None)
Quarter: 2004Q3

REPORT INFORMATION
  Report Type: 
  Country: None (occurrence: None)
  Receive Date: 20040827
  Receipt Date: 20040827
  Transmission Date: 20050211
  Serious: Yes (Hospitalization)
  Sender: FDA-Public Use
  Company Number: None

PATIENT
  Sex: Male
  Weight: 90.8555 kg

DRUGS (21)
  1. OMEPRAZOLE [Suspect]
     Indication: GASTROOESOPHAGEAL REFLUX DISEASE
     Dosage: 20 MG BID ORAL
     Route: 048
     Dates: start: 20040505, end: 20040506
  2. BUPROPION HCL [Concomitant]
  3. CALCITRIOL [Concomitant]
  4. CALCIUM ACETATE [Concomitant]
  5. CLONIDINE HCL [Concomitant]
  6. CLOPIDOGREL [Concomitant]
  7. DILTIAZEM [Concomitant]
  8. FERROUS SULFATE TAB [Concomitant]
  9. FOLIC ACID [Concomitant]
  10. FOSINOPRIL SODIUM [Concomitant]
  11. FUROSEMIDE [Concomitant]
  12. VICODIN [Concomitant]
  13. INSULIN LISPRO [Concomitant]
  14. HUMULIN 70/30 [Concomitant]
  15. INSULIN GLARINE [Concomitant]
  16. LABETALOL HCL [Concomitant]
  17. LEVOTHYROXINE SODIUM [Concomitant]
  18. LOVASTATIN [Concomitant]
  19. NIACIN [Concomitant]
  20. SILDENAFIL [Concomitant]
  21. VITAMIN E [Concomitant]

REACTIONS (4)
  - CONDITION AGGRAVATED [None]
  - DIABETES MELLITUS INSULIN-DEPENDENT [None]
  - DIARRHOEA [None]
  - HYPOGLYCAEMIA [None]
